FAERS Safety Report 8812336 (Version 1)
Quarter: 2012Q4

REPORT INFORMATION
  Report Type: 
  Country: US (occurrence: US)
  Receive Date: 20120927
  Receipt Date: 20120927
  Transmission Date: 20130627
  Serious: No
  Sender: FDA-Public Use
  Company Number: US-PFIZER INC-2012235640

PATIENT
  Sex: Female

DRUGS (1)
  1. DETROL LA [Suspect]
     Dosage: UNK

REACTIONS (2)
  - Malaise [Unknown]
  - Hypertonic bladder [Unknown]
